FAERS Safety Report 8268846-X (Version None)
Quarter: 2012Q2

REPORT INFORMATION
  Report Type: 
  Country: None (occurrence: None)
  Receive Date: 20120409
  Receipt Date: 20120409
  Transmission Date: 20120825
  Serious: Yes (Other)
  Sender: FDA-Public Use
  Company Number: None

PATIENT
  Age: 53 Year
  Sex: Female
  Weight: 50.802 kg

DRUGS (2)
  1. CIPROFLOXACIN [Suspect]
     Indication: CONJUNCTIVITIS BACTERIAL
     Dosage: 1 DROP IN EACH EYE
     Route: 047
     Dates: start: 20120406, end: 20120406
  2. CIPROFLOXACIN [Concomitant]

REACTIONS (2)
  - DRUG HYPERSENSITIVITY [None]
  - CORNEAL DISORDER [None]
